FAERS Safety Report 8185653-7 (Version None)
Quarter: 2012Q1

REPORT INFORMATION
  Report Type: 
  Country: None (occurrence: None)
  Receive Date: 20120305
  Receipt Date: 20120217
  Transmission Date: 20120608
  Serious: Yes (Other)
  Sender: FDA-Public Use
  Company Number: CHPA2012US003297

PATIENT
  Sex: Male

DRUGS (3)
  1. NICOTINE [Suspect]
     Dosage: 21 MG, QD
     Route: 062
  2. NICOTINE [Suspect]
     Dosage: 7 MG, QD
     Route: 062
  3. NICOTINE [Suspect]
     Indication: SMOKING CESSATION THERAPY
     Dosage: 14 MG, QD

REACTIONS (5)
  - MALIGNANT MELANOMA [None]
  - SKIN IRRITATION [None]
  - NIGHTMARE [None]
  - METASTATIC MALIGNANT MELANOMA [None]
  - PAIN [None]
